APPROVED DRUG PRODUCT: GLIPIZIDE
Active Ingredient: GLIPIZIDE
Strength: 10MG
Dosage Form/Route: TABLET;ORAL
Application: A074497 | Product #002 | TE Code: AB
Applicant: ANI PHARMACEUTICALS INC
Approved: Aug 31, 1995 | RLD: No | RS: No | Type: RX